FAERS Safety Report 7657685-6 (Version None)
Quarter: 2011Q3

REPORT INFORMATION
  Report Type: 
  Country: None (occurrence: None)
  Receive Date: 20110804
  Receipt Date: 20110718
  Transmission Date: 20111222
  Serious: Yes (Hospitalization, Other)
  Sender: FDA-Public Use
  Company Number: AU-GENENTECH-322431

PATIENT
  Sex: Male

DRUGS (1)
  1. LUCENTIS [Suspect]
     Indication: MACULAR DEGENERATION
     Dosage: 0.05 ML, UNKNOWN
     Route: 031
     Dates: start: 20090101

REACTIONS (3)
  - FALL [None]
  - CONJUNCTIVAL HAEMORRHAGE [None]
  - MULTIPLE FRACTURES [None]
